FAERS Safety Report 12383807 (Version 2)
Quarter: 2016Q4

REPORT INFORMATION
  Report Type: Spontaneous
  Country: US (occurrence: US)
  Receive Date: 20160519
  Receipt Date: 20161229
  Transmission Date: 20170207
  Serious: No
  Sender: FDA-Public Use
  Company Number: US-ASTRAZENECA-2016SE37965

PATIENT
  Age: 72 Year
  Sex: Female
  Weight: 62.1 kg

DRUGS (3)
  1. METFORMIN [Concomitant]
     Active Substance: METFORMIN HYDROCHLORIDE
  2. BYETTA [Suspect]
     Active Substance: EXENATIDE
     Indication: DIABETES MELLITUS
     Route: 058
     Dates: start: 2012, end: 2013
  3. BYETTA [Suspect]
     Active Substance: EXENATIDE
     Indication: DIABETES MELLITUS
     Route: 058
     Dates: end: 2016

REACTIONS (8)
  - Intentional product misuse [Unknown]
  - Weight increased [Unknown]
  - Vomiting [Unknown]
  - Device issue [Unknown]
  - Blood glucose abnormal [Unknown]
  - Decreased appetite [Unknown]
  - Hypersensitivity [Unknown]
  - Drug dose omission [Unknown]

NARRATIVE: CASE EVENT DATE: 2012
